FAERS Safety Report 7878466 (Version 3)
Quarter: 2018Q3

REPORT INFORMATION
  Report Type: Spontaneous
  Country: DE (occurrence: DE)
  Receive Date: 20110330
  Receipt Date: 20180725
  Transmission Date: 20181010
  Serious: Yes (Hospitalization, Other)
  Sender: FDA-Public Use
  Company Number: DE-PFIZER INC-2011066476

PATIENT
  Age: 89 Year
  Sex: Female

DRUGS (6)
  1. PLAVIX [Concomitant]
     Active Substance: CLOPIDOGREL BISULFATE
     Indication: CORONARY ARTERY DISEASE
     Dosage: 75 MG, 1X/DAY
     Route: 048
     Dates: start: 2006
  2. KARVEZIDE [Interacting]
     Active Substance: HYDROCHLOROTHIAZIDE\IRBESARTAN
     Indication: CORONARY ARTERY DISEASE
     Dosage: 1 DF, 1X/DAY (12.5 MG HYDROCHLOROTHIAZIDE/300 MG IRBESARTAN)
     Route: 048
     Dates: start: 2006
  3. METOPROLOL ^ALIUD PHARMA^ [Interacting]
     Active Substance: METOPROLOL TARTRATE
     Indication: CORONARY ARTERY DISEASE
     Dosage: 50 MG, 1X/DAY
     Route: 048
     Dates: start: 2006, end: 20110212
  4. AMLODIPINE BESILATE [Suspect]
     Active Substance: AMLODIPINE BESYLATE
     Indication: HYPERTENSION
     Dosage: 5 MG, 1X/DAY
     Route: 048
     Dates: start: 2006
  5. SIMVAHEXAL [Concomitant]
     Active Substance: SIMVASTATIN
     Indication: HYPERLIPIDAEMIA
     Dosage: 20 MG, 1X/DAY (HALF OF 40 MG TABLET)
     Route: 048
     Dates: start: 2006
  6. NITRANGIN SPRAY [Suspect]
     Active Substance: NITROGLYCERIN
     Indication: CORONARY ARTERY DISEASE
     Dosage: 0.4 MG, UNK
     Route: 060
     Dates: start: 2006

REACTIONS (7)
  - Heart rate decreased [Recovered/Resolved]
  - Drug interaction [None]
  - Activated partial thromboplastin time shortened [None]
  - Blood glucose increased [None]
  - Syncope [Recovered/Resolved]
  - Dizziness [Recovered/Resolved]
  - Blood sodium decreased [None]

NARRATIVE: CASE EVENT DATE: 20110212
